FAERS Safety Report 25803103 (Version 1)
Quarter: 2025Q3

REPORT INFORMATION
  Report Type: Spontaneous
  Country: IN (occurrence: IN)
  Receive Date: 20250915
  Receipt Date: 20250915
  Transmission Date: 20251021
  Serious: Yes (Other)
  Sender: BRISTOL-MYERS SQUIBB COMPANY
  Company Number: IN-BRISTOL-MYERS SQUIBB COMPANY-2025-124558

PATIENT
  Age: 66 Year
  Sex: Male

DRUGS (4)
  1. NELVUTAMIG [Suspect]
     Active Substance: NELVUTAMIG
     Indication: Lung adenocarcinoma
     Dates: start: 202412, end: 20250726
  2. NIVOLUMAB [Suspect]
     Active Substance: NIVOLUMAB
     Indication: Lung adenocarcinoma
     Dates: start: 202412, end: 20250726
  3. CARBOPLATIN [Suspect]
     Active Substance: CARBOPLATIN
     Indication: Lung adenocarcinoma
     Dates: start: 20241104, end: 20250726
  4. PEMETREXED [Suspect]
     Active Substance: PEMETREXED
     Indication: Lung adenocarcinoma
     Dates: start: 20241104, end: 20250726

REACTIONS (6)
  - Autoimmune disorder [Unknown]
  - Thyroiditis [Unknown]
  - Keratitis [Unknown]
  - Shoulder girdle pain [Unknown]
  - Blood creatine phosphokinase increased [Unknown]
  - Dry mouth [Unknown]

NARRATIVE: CASE EVENT DATE: 20250530
